FAERS Safety Report 26081750 (Version 1)
Quarter: 2025Q4

REPORT INFORMATION
  Report Type: Spontaneous
  Country: IN (occurrence: US)
  Receive Date: 20251124
  Receipt Date: 20251124
  Transmission Date: 20260118
  Serious: No
  Sender: CIPLA
  Company Number: IN-CIPLA LTD.-2025US14596

PATIENT

DRUGS (1)
  1. ALBUTEROL [Suspect]
     Active Substance: ALBUTEROL
     Indication: Product used for unknown indication
     Dosage: UNK
     Route: 065
     Dates: start: 20251108

REACTIONS (10)
  - Blister [Not Recovered/Not Resolved]
  - Pruritus [Not Recovered/Not Resolved]
  - Lip swelling [Not Recovered/Not Resolved]
  - Swelling [Not Recovered/Not Resolved]
  - Lip pain [Not Recovered/Not Resolved]
  - Erythema [Not Recovered/Not Resolved]
  - Lip erythema [Not Recovered/Not Resolved]
  - Lip pruritus [Not Recovered/Not Resolved]
  - Rash [Not Recovered/Not Resolved]
  - Pain [Not Recovered/Not Resolved]

NARRATIVE: CASE EVENT DATE: 20251109
